FAERS Safety Report 18273804 (Version 2)
Quarter: 2020Q3

REPORT INFORMATION
  Report Type: Spontaneous
  Country: US (occurrence: US)
  Receive Date: 20200916
  Receipt Date: 20200917
  Transmission Date: 20201103
  Serious: Yes (Hospitalization, Other)
  Sender: FDA-Public Use
  Company Number: US-PFIZER INC-2020352553

PATIENT
  Age: 89 Year

DRUGS (2)
  1. FLAGYL [Suspect]
     Active Substance: METRONIDAZOLE\METRONIDAZOLE HYDROCHLORIDE
     Dosage: 500 MG
  2. XALATAN [Suspect]
     Active Substance: LATANOPROST
     Dosage: UNK

REACTIONS (9)
  - Dizziness [Unknown]
  - Headache [Unknown]
  - Migraine [Unknown]
  - Viral sinusitis [Unknown]
  - Eye disorder [Unknown]
  - Head discomfort [Unknown]
  - Syncope [Unknown]
  - Ear infection viral [Unknown]
  - Seizure [Unknown]
